FAERS Safety Report 21471993 (Version 3)
Quarter: 2025Q2

REPORT INFORMATION
  Report Type: Spontaneous
  Country: US (occurrence: US)
  Receive Date: 20221018
  Receipt Date: 20250423
  Transmission Date: 20250716
  Serious: Yes (Other)
  Sender: PFIZER
  Company Number: US-PFIZER INC-PV202200045860

PATIENT
  Age: 56 Year
  Sex: Female

DRUGS (7)
  1. IBRANCE [Suspect]
     Active Substance: PALBOCICLIB
     Indication: Breast cancer female
     Route: 048
     Dates: start: 20220406, end: 202303
  2. IBRANCE [Suspect]
     Active Substance: PALBOCICLIB
     Route: 048
  3. CALCIUM [Concomitant]
     Active Substance: CALCIUM
  4. FOLIC ACID [Concomitant]
     Active Substance: FOLIC ACID
  5. LETROZOLE [Concomitant]
     Active Substance: LETROZOLE
  6. ONDANSETRON [Concomitant]
     Active Substance: ONDANSETRON
  7. CHOLECALCIFEROL [Concomitant]
     Active Substance: CHOLECALCIFEROL

REACTIONS (2)
  - Cerebrovascular accident [Unknown]
  - Fatigue [Not Recovered/Not Resolved]
